FAERS Safety Report 5891194-X (Version None)
Quarter: 2008Q3

REPORT INFORMATION
  Report Type: 
  Country: None (occurrence: None)
  Receive Date: 20080922
  Receipt Date: 20080901
  Transmission Date: 20090109
  Serious: Yes (Hospitalization, Other)
  Sender: FDA-Public Use
  Company Number: HQWYE100018JUL06

PATIENT
  Sex: Male
  Weight: 66 kg

DRUGS (6)
  1. RAPAMUNE [Suspect]
     Indication: PROPHYLAXIS AGAINST TRANSPLANT REJECTION
     Route: 048
     Dates: start: 20060511, end: 20060511
  2. RAPAMUNE [Suspect]
     Route: 048
     Dates: start: 20060512, end: 20060628
  3. RAPAMUNE [Suspect]
     Route: 048
     Dates: start: 20060629
  4. ROCALTROL [Concomitant]
     Route: 048
     Dates: start: 20060627
  5. CYCLOSPORINE [Concomitant]
     Dosage: 275 MG
     Route: 065
     Dates: start: 20060101, end: 20060628
  6. CYCLOSPORINE [Concomitant]
     Dosage: 225 MG
     Route: 065
     Dates: start: 20060629

REACTIONS (1)
  - KIDNEY TRANSPLANT REJECTION [None]
